FAERS Safety Report 21223173 (Version 1)
Quarter: 2022Q3

REPORT INFORMATION
  Report Type: Spontaneous
  Country: US (occurrence: None)
  Receive Date: 20220817
  Receipt Date: 20220817
  Transmission Date: 20221027
  Serious: Yes (Death)
  Sender: FDA-Public Use
  Company Number: None

PATIENT
  Age: 42 Year
  Sex: Female

DRUGS (3)
  1. VIVITROL [Suspect]
     Active Substance: NALTREXONE
     Indication: Drug use disorder
     Dosage: FREQUENCY : MONTHLY;?
     Route: 030
     Dates: start: 20211102, end: 20220207
  2. FENTANYL [Suspect]
     Active Substance: FENTANYL
  3. BUPRENORPHINE\NALOXONE [Suspect]
     Active Substance: BUPRENORPHINE\NALOXONE

REACTIONS (2)
  - Refusal of treatment by patient [None]
  - Toxicity to various agents [None]

NARRATIVE: CASE EVENT DATE: 20220505
